FAERS Safety Report 10330776 (Version 1)
Quarter: 2014Q3

REPORT INFORMATION
  Report Type: Spontaneous
  Country: US (occurrence: None)
  Receive Date: 20140718
  Receipt Date: 20140718
  Transmission Date: 20150326
  Serious: No
  Sender: FDA-Public Use
  Company Number: None

PATIENT
  Age: 53 Year

DRUGS (1)
  1. ESTROGEL [Suspect]
     Active Substance: ESTRADIOL
     Indication: BLOOD OESTROGEN DECREASED
     Dosage: 1 PUMP; TWICE DAILY; APPLIED TO A SURFACE, USUALLY THE SKIN

REACTIONS (11)
  - Breast tenderness [None]
  - Neck pain [None]
  - Arthralgia [None]
  - Dry skin [None]
  - Urticaria [None]
  - Breast enlargement [None]
  - Rash generalised [None]
  - Pruritus [None]
  - Musculoskeletal pain [None]
  - Rash [None]
  - Pain in extremity [None]

NARRATIVE: CASE EVENT DATE: 20140715
